FAERS Safety Report 8355499-5 (Version None)
Quarter: 2012Q2

REPORT INFORMATION
  Report Type: 
  Country: None (occurrence: None)
  Receive Date: 20120512
  Receipt Date: 20120423
  Transmission Date: 20120825
  Serious: No
  Sender: FDA-Public Use
  Company Number: PHHY2009KR33106

PATIENT
  Sex: Female
  Weight: 48 kg

DRUGS (1)
  1. EXJADE [Suspect]
     Indication: IRON OVERLOAD
     Dosage: 1000 MG (20MG/KG)
     Route: 048
     Dates: start: 20090528, end: 20090628

REACTIONS (1)
  - SERUM FERRITIN ABNORMAL [None]
